FAERS Safety Report 7081980-5 (Version None)
Quarter: 2010Q4

REPORT INFORMATION
  Report Type: 
  Country: None (occurrence: None)
  Receive Date: 20101103
  Receipt Date: 20101028
  Transmission Date: 20110411
  Serious: Yes (Life-Threatening, Hospitalization)
  Sender: FDA-Public Use
  Company Number: JP-PFIZER INC-2010125079

PATIENT
  Age: 84 Year
  Sex: Male
  Weight: 32.9 kg

DRUGS (9)
  1. PRODIF [Suspect]
     Indication: FUNGAL INFECTION
     Dosage: 504.5 MG, 1X/DAY
     Route: 042
     Dates: start: 20100918, end: 20100919
  2. PRODIF [Suspect]
     Dosage: 252.3 MG, 1X/DAY
     Route: 042
     Dates: start: 20100920, end: 20100928
  3. ZYVOX [Suspect]
     Indication: PNEUMONIA STAPHYLOCOCCAL
     Dosage: 600 MG, 2X/DAY
     Route: 041
     Dates: start: 20100917, end: 20100928
  4. RASENAZOLIN [Suspect]
     Indication: GASTRECTOMY
     Dosage: 1 G, 2X/DAY
     Route: 041
     Dates: start: 20100921, end: 20100924
  5. LANSOPRAZOLE [Suspect]
     Indication: GASTRIC ULCER
     Dosage: 30 MG, 1X/DAY
     Route: 048
     Dates: start: 20100831, end: 20101006
  6. LASIX [Concomitant]
     Dosage: UNK
  7. SOLDACTONE [Concomitant]
     Dosage: UNK
  8. INTRALIPID 10% [Concomitant]
     Dosage: UNK
  9. PLEVITA S [Concomitant]
     Dosage: UNK

REACTIONS (9)
  - ANAPHYLACTIC SHOCK [None]
  - BENIGN PROSTATIC HYPERPLASIA [None]
  - BONE MARROW FAILURE [None]
  - GASTRIC ULCER HAEMORRHAGE [None]
  - HISTIOCYTOSIS HAEMATOPHAGIC [None]
  - PANCYTOPENIA [None]
  - PLATELET COUNT DECREASED [None]
  - PNEUMONIA STAPHYLOCOCCAL [None]
  - SEPSIS [None]
